FAERS Safety Report 10550921 (Version 1)
Quarter: 2014Q4

REPORT INFORMATION
  Report Type: Spontaneous
  Country: US (occurrence: None)
  Receive Date: 20141020
  Receipt Date: 20141020
  Transmission Date: 20150529
  Serious: No
  Sender: FDA-Public Use
  Company Number: AEGR000610

PATIENT
  Age: 66 Year
  Sex: Female
  Weight: 106.1 kg

DRUGS (9)
  1. LEXAPRO ( ESCITALOPRAM OXALATE) [Concomitant]
  2. NITROGLYCERIN ( GLYCERYL TRINITRATE) [Concomitant]
  3. ASA ( ACETYLSALICYLIC ACID) [Concomitant]
  4. FISH OIL [Concomitant]
     Active Substance: FISH OIL
  5. JUXTAPID [Suspect]
     Active Substance: LOMITAPIDE MESYLATE
     Indication: TYPE IIA HYPERLIPIDAEMIA
     Route: 048
     Dates: start: 20140513
  6. VITAMIN D3 ( COLECALCIFEROL) [Concomitant]
  7. PLAVIX ( CLOPIDOGREL BISULFATE) [Concomitant]
  8. AMBIEN ( ZOLIPIDEM TARTRATE) [Concomitant]
  9. CRESTOR ( ROSUVASTATIN CALCIUM) [Concomitant]

REACTIONS (1)
  - Diarrhoea [None]

NARRATIVE: CASE EVENT DATE: 201407
